FAERS Safety Report 5305303-4 (Version None)
Quarter: 2007Q2

REPORT INFORMATION
  Report Type: 
  Country: None (occurrence: None)
  Receive Date: 20070424
  Receipt Date: 20070413
  Transmission Date: 20071010
  Serious: Yes (Other)
  Sender: FDA-Public Use
  Company Number: PHEH2007US03236

PATIENT
  Sex: Female

DRUGS (1)
  1. FEMARA [Suspect]

REACTIONS (5)
  - CHILLS [None]
  - HOT FLUSH [None]
  - HYPOTHYROIDISM [None]
  - MYALGIA [None]
  - NIGHT SWEATS [None]
